FAERS Safety Report 19615263 (Version 1)
Quarter: 2021Q3

REPORT INFORMATION
  Report Type: Other
  Country: CN (occurrence: CN)
  Receive Date: 20210727
  Receipt Date: 20210727
  Transmission Date: 20211014
  Serious: Yes (Life-Threatening, Other)
  Sender: FDA-Public Use
  Company Number: CN-B.BRAUN MEDICAL INC.-2114329

PATIENT
  Age: 5 Year
  Sex: Male

DRUGS (1)
  1. SODIUM CHLORIDE INJECTION USP 0264?7800?09 [Suspect]
     Active Substance: SODIUM CHLORIDE
     Indication: HEPATIC ECHINOCOCCIASIS

REACTIONS (3)
  - Anaphylactic shock [None]
  - Off label use [None]
  - Hypernatraemia [None]
